FAERS Safety Report 6126236-X (Version None)
Quarter: 2009Q1

REPORT INFORMATION
  Report Type: 
  Country: None (occurrence: None)
  Receive Date: 20090320
  Receipt Date: 20090312
  Transmission Date: 20090719
  Serious: Yes (Death)
  Sender: FDA-Public Use
  Company Number: RU-ASTRAZENECA-2009SE01088

PATIENT
  Age: 46 Year
  Sex: Female
  Weight: 99 kg

DRUGS (4)
  1. MARCAINE [Suspect]
     Indication: ANAESTHESIA
     Route: 037
     Dates: start: 20090304, end: 20090304
  2. ATROPINE [Concomitant]
     Dosage: 0.1%, 0.6 ML
     Dates: start: 20090304
  3. PROMEDOLE [Concomitant]
     Dosage: 2%, 1.0 ML
     Dates: start: 20090304
  4. DIPHENHYDRAMINE HCL [Concomitant]
     Dosage: 1%, 1.0 ML
     Dates: start: 20090304

REACTIONS (1)
  - ANAPHYLACTIC SHOCK [None]
